FAERS Safety Report 21797888 (Version 1)
Quarter: 2022Q4

REPORT INFORMATION
  Report Type: Spontaneous
  Country: RS (occurrence: RS)
  Receive Date: 20221230
  Receipt Date: 20221230
  Transmission Date: 20230113
  Serious: Yes (Other)
  Sender: FDA-Public Use
  Company Number: RS-TEVA-2022-RS-2840175

PATIENT
  Age: 24 Year
  Sex: Female

DRUGS (1)
  1. COPAXONE [Suspect]
     Active Substance: GLATIRAMER ACETATE
     Indication: Multiple sclerosis
     Dosage: 40MG/ML
     Route: 058
     Dates: start: 202009

REACTIONS (3)
  - Hypersensitivity [Unknown]
  - Erythema [Unknown]
  - Asphyxia [Unknown]

NARRATIVE: CASE EVENT DATE: 20221219
